FAERS Safety Report 23938987 (Version 1)
Quarter: 2024Q2

REPORT INFORMATION
  Report Type: Spontaneous
  Country: US (occurrence: US)
  Receive Date: 20240604
  Receipt Date: 20240604
  Transmission Date: 20240716
  Serious: No
  Sender: FDA-Public Use
  Company Number: US-Prasco Laboratories-PRAS20240958

PATIENT
  Sex: Female

DRUGS (1)
  1. ESTRADIOL [Suspect]
     Active Substance: ESTRADIOL
     Indication: Product used for unknown indication
     Dosage: UNKNOWN
     Route: 067

REACTIONS (4)
  - Soft tissue disorder [Unknown]
  - Pain in extremity [Not Recovered/Not Resolved]
  - Withdrawal bleed [Unknown]
  - Intentional dose omission [None]

NARRATIVE: CASE EVENT DATE: 20240201
